FAERS Safety Report 8193648-2 (Version None)
Quarter: 2012Q1

REPORT INFORMATION
  Report Type: 
  Country: None (occurrence: None)
  Receive Date: 20120308
  Receipt Date: 20120302
  Transmission Date: 20120608
  Serious: Yes (Hospitalization, Other)
  Sender: FDA-Public Use
  Company Number: DE-JNJFOC-20120213563

PATIENT
  Sex: Female
  Weight: 105 kg

DRUGS (3)
  1. XARELTO [Suspect]
     Indication: EMBOLISM VENOUS
     Route: 048
     Dates: start: 20120131, end: 20120221
  2. HEPARIN [Concomitant]
  3. MARCUMAR [Concomitant]
     Indication: EMBOLISM VENOUS
     Dates: end: 20120131

REACTIONS (4)
  - ALANINE AMINOTRANSFERASE INCREASED [None]
  - TRANSAMINASES INCREASED [None]
  - HEPATIC NECROSIS [None]
  - ASPARTATE AMINOTRANSFERASE INCREASED [None]
